FAERS Safety Report 9286762 (Version 2)
Quarter: 2013Q1

REPORT INFORMATION
  Report Type: Spontaneous
  Country: JP (occurrence: None)
  Receive Date: 20120912
  Receipt Date: 20121001
  Transmission Date: 20140127
  Serious: Yes (Hospitalization, Other)
  Sender: FDA-Public Use
  Company Number: ENT 2012-0116

PATIENT
  Age: 86 Year
  Sex: Female
  Weight: 37 kg

DRUGS (9)
  1. SYMMETREL [Suspect]
     Route: 048
     Dates: end: 20120704
  2. MENESIT [Suspect]
     Route: 048
  3. SIFROL [Suspect]
     Route: 048
     Dates: end: 20120704
  4. PP-OD [Suspect]
     Route: 048
     Dates: end: 20120706
  5. SELBEX (TEPRENONE) [Suspect]
     Route: 048
     Dates: end: 20120724
  6. ITOROL [Suspect]
  7. TAKEPRON (LANSOPRAZOLE) [Suspect]
     Route: 048
  8. ZONISAMIDE [Suspect]
     Route: 048
     Dates: end: 20120702
  9. COMTAN [Concomitant]

REACTIONS (12)
  - Encephalitis [None]
  - Renal impairment [None]
  - Pneumonia aspiration [None]
  - Malnutrition [None]
  - Parkinson^s disease [None]
  - Activities of daily living impaired [None]
  - Bedridden [None]
  - Pneumonia [None]
  - Ileus [None]
  - Myoclonus [None]
  - Hyperaemia [None]
  - Urinary tract inflammation [None]
